FAERS Safety Report 6128887-5 (Version None)
Quarter: 2009Q1

REPORT INFORMATION
  Report Type: 
  Country: None (occurrence: None)
  Receive Date: 20090320
  Receipt Date: 20090310
  Transmission Date: 20090719
  Serious: Yes (Hospitalization, Other)
  Sender: FDA-Public Use
  Company Number: 2009-00676

PATIENT
  Age: 51 Year
  Sex: Female
  Weight: 76.9 kg

DRUGS (13)
  1. VELCADE [Suspect]
     Indication: MULTIPLE MYELOMA
     Dosage: 1.3 MG/M2, INTRAVENOUS
     Route: 042
     Dates: start: 20080205
  2. THALIDOMIDE [Suspect]
     Indication: MULTIPLE MYELOMA
     Dosage: 100 MG, 200 MG, ORAL
     Route: 048
     Dates: start: 20090119
  3. THALIDOMIDE [Suspect]
     Indication: MULTIPLE MYELOMA
     Dosage: 100 MG, 200 MG, ORAL
     Route: 048
     Dates: start: 20090120
  4. DEXAMETHASONE TAB [Suspect]
     Indication: MULTIPLE MYELOMA
     Dosage: 40 MG, ORAL
     Route: 048
     Dates: start: 20081201
  5. ALLOPURINOL [Concomitant]
  6. NORVASC [Concomitant]
  7. TUMS (CALCIUM CARBONATE) [Concomitant]
  8. CATAPRES [Concomitant]
  9. SYNTHROID [Concomitant]
  10. LOPRESSOR [Concomitant]
  11. NEPHRO-VITE RX (VITAMIN B NOS, FOLIC ACID ) [Concomitant]
  12. PRILOSEC [Concomitant]
  13. AMBIEN [Concomitant]

REACTIONS (4)
  - CATHETER RELATED INFECTION [None]
  - STEVENS-JOHNSON SYNDROME [None]
  - TOXIC EPIDERMAL NECROLYSIS [None]
  - WOUND INFECTION STAPHYLOCOCCAL [None]
